FAERS Safety Report 21712314 (Version 1)
Quarter: 2022Q4

REPORT INFORMATION
  Report Type: Spontaneous
  Country: CN (occurrence: CN)
  Receive Date: 20221212
  Receipt Date: 20221212
  Transmission Date: 20230113
  Serious: Yes (Other)
  Sender: FDA-Public Use
  Company Number: CN-002147023-NVSC2022CN282750

PATIENT
  Age: 13 Year
  Sex: Male

DRUGS (4)
  1. OXCARBAZEPINE [Suspect]
     Active Substance: OXCARBAZEPINE
     Indication: Partial seizures
     Dosage: 0.075, Q12H INITIAL DOSE
     Route: 065
     Dates: start: 20170513
  2. OXCARBAZEPINE [Suspect]
     Active Substance: OXCARBAZEPINE
     Indication: Generalised tonic-clonic seizure
     Dosage: GRADUALLY INCREASED TO 0.15, Q12H
     Route: 065
     Dates: end: 20210812
  3. VALPROIC ACID [Concomitant]
     Active Substance: VALPROIC ACID
     Indication: Partial seizures
     Dosage: DOSE GRADUALLY INCREASING TO 5 ML, Q12H (24 KG, 16 MG/KG QD)
     Route: 065
     Dates: start: 20160325, end: 20210812
  4. VALPROIC ACID [Concomitant]
     Active Substance: VALPROIC ACID
     Indication: Generalised tonic-clonic seizure

REACTIONS (3)
  - Long QT syndrome [Recovered/Resolved]
  - Epilepsy [Unknown]
  - Condition aggravated [Unknown]

NARRATIVE: CASE EVENT DATE: 20210812
